FAERS Safety Report 19206814 (Version 2)
Quarter: 2022Q1

REPORT INFORMATION
  Report Type: Spontaneous
  Country: NZ (occurrence: NZ)
  Receive Date: 20210503
  Receipt Date: 20220112
  Transmission Date: 20220423
  Serious: Yes (Other)
  Sender: FDA-Public Use
  Company Number: NZ-BRISTOL-MYERS SQUIBB COMPANY-BMS-2021-039394

PATIENT
  Age: 75 Year
  Sex: Female

DRUGS (1)
  1. TRIAMCINOLONE ACETONIDE [Suspect]
     Active Substance: TRIAMCINOLONE ACETONIDE
     Indication: Eye infection toxoplasmal
     Dosage: SUBTENON ROUTE
     Route: 065

REACTIONS (2)
  - Eye infection toxoplasmal [Unknown]
  - Intentional product use issue [Unknown]
